FAERS Safety Report 7109643-8 (Version None)
Quarter: 2010Q4

REPORT INFORMATION
  Report Type: 
  Country: None (occurrence: None)
  Receive Date: 20101115
  Receipt Date: 20101115
  Transmission Date: 20110411
  Serious: No
  Sender: FDA-Public Use
  Company Number: None

PATIENT
  Age: 40 Year
  Sex: Female
  Weight: 59.1 kg

DRUGS (2)
  1. CITALOPRAM HYDROBROMIDE [Suspect]
  2. WELLBUTRIN XL [Suspect]

REACTIONS (8)
  - ABNORMAL BEHAVIOUR [None]
  - ANGER [None]
  - BACK PAIN [None]
  - DELUSION [None]
  - PAIN IN EXTREMITY [None]
  - PARANOIA [None]
  - PERSONALITY CHANGE [None]
  - RESTLESS LEGS SYNDROME [None]
